FAERS Safety Report 10306197 (Version 1)
Quarter: 2014Q3

REPORT INFORMATION
  Report Type: Spontaneous
  Country: US (occurrence: None)
  Receive Date: 20140711
  Receipt Date: 20140711
  Transmission Date: 20150326
  Serious: Yes (Hospitalization)
  Sender: FDA-Public Use
  Company Number: US-H14001-14-00084

PATIENT
  Age: 19 Year
  Sex: Male

DRUGS (3)
  1. METHADONE [Concomitant]
     Active Substance: METHADONE HYDROCHLORIDE
  2. NALOXONE [Suspect]
     Active Substance: NALOXONE
     Indication: UNRESPONSIVE TO STIMULI
  3. CITALOPRAM [Concomitant]
     Active Substance: CITALOPRAM HYDROBROMIDE

REACTIONS (4)
  - Cardiomyopathy [None]
  - Seizure like phenomena [None]
  - Toxicity to various agents [None]
  - Vomiting [None]
